FAERS Safety Report 5080582-X (Version None)
Quarter: 2006Q3

REPORT INFORMATION
  Report Type: 
  Country: None (occurrence: None)
  Receive Date: 20060815
  Receipt Date: 20060811
  Transmission Date: 20061208
  Serious: Yes (Other)
  Sender: FDA-Public Use
  Company Number: US-GLAXOSMITHKLINE-A0616307A

PATIENT
  Age: 60 Year
  Sex: Male

DRUGS (3)
  1. AUGMENTIN [Suspect]
     Indication: SKIN INFECTION
     Dosage: 875MG TWICE PER DAY
     Route: 048
     Dates: start: 20060603, end: 20060620
  2. LISINOPRIL [Concomitant]
  3. HYDROCHLOROTHIAZIDE [Concomitant]

REACTIONS (7)
  - ANOREXIA [None]
  - BLOOD BILIRUBIN ABNORMAL [None]
  - FAECES PALE [None]
  - JAUNDICE CHOLESTATIC [None]
  - PRURITUS [None]
  - WEIGHT DECREASED [None]
  - YELLOW SKIN [None]
